FAERS Safety Report 21757001 (Version 1)
Quarter: 2022Q4

REPORT INFORMATION
  Report Type: Spontaneous
  Country: US (occurrence: None)
  Receive Date: 20221220
  Receipt Date: 20221220
  Transmission Date: 20230112
  Serious: Yes (Death, Other)
  Sender: FDA-Public Use
  Company Number: 2022A411980

PATIENT

DRUGS (1)
  1. NEXIUM 24HR [Suspect]
     Active Substance: ESOMEPRAZOLE MAGNESIUM
     Dosage: FOR VARIOUS DATES AND YEARS
     Route: 048

REACTIONS (5)
  - Death [Fatal]
  - Chronic kidney disease [Unknown]
  - Gastric cancer [Unknown]
  - Renal failure [Unknown]
  - Rebound acid hypersecretion [Unknown]
